FAERS Safety Report 8704766 (Version 3)
Quarter: 2013Q1

REPORT INFORMATION
  Report Type: Report from Study
  Country: JP (occurrence: JP)
  Receive Date: 20120803
  Receipt Date: 20130102
  Transmission Date: 20140127
  Serious: Yes (Hospitalization, Other)
  Sender: FDA-Public Use
  Company Number: JP-ROCHE-624493

PATIENT
  Age: 67 Year
  Sex: Female
  Weight: 50 kg

DRUGS (41)
  1. TOCILIZUMAB [Suspect]
     Indication: RHEUMATOID ARTHRITIS
     Route: 041
     Dates: start: 20081021, end: 20081021
  2. TOCILIZUMAB [Suspect]
     Route: 041
     Dates: start: 20081118, end: 20081118
  3. TOCILIZUMAB [Suspect]
     Route: 041
     Dates: start: 20081216, end: 20081216
  4. TOCILIZUMAB [Suspect]
     Route: 041
     Dates: start: 20090113, end: 20090113
  5. TOCILIZUMAB [Suspect]
     Route: 041
     Dates: start: 20090210, end: 20090210
  6. TOCILIZUMAB [Suspect]
     Route: 041
     Dates: start: 20090612, end: 20090612
  7. TOCILIZUMAB [Suspect]
     Route: 041
     Dates: start: 20090707, end: 20090707
  8. TOCILIZUMAB [Suspect]
     Route: 041
     Dates: start: 20090814, end: 20090814
  9. TOCILIZUMAB [Suspect]
     Route: 041
     Dates: start: 20091006, end: 20091006
  10. TOCILIZUMAB [Suspect]
     Route: 041
     Dates: start: 20091110, end: 20091110
  11. TOCILIZUMAB [Suspect]
     Route: 041
     Dates: start: 20091215, end: 20091215
  12. TOCILIZUMAB [Suspect]
     Route: 041
     Dates: start: 20100112, end: 20100112
  13. TOCILIZUMAB [Suspect]
     Route: 041
     Dates: start: 20100209, end: 20100209
  14. TOCILIZUMAB [Suspect]
     Route: 041
     Dates: start: 20100323, end: 20100323
  15. TOCILIZUMAB [Suspect]
     Route: 041
     Dates: start: 20100420, end: 20100420
  16. TOCILIZUMAB [Suspect]
     Route: 041
     Dates: start: 20100609, end: 20100609
  17. TOCILIZUMAB [Suspect]
     Route: 041
     Dates: start: 20100707, end: 20100707
  18. TOCILIZUMAB [Suspect]
     Route: 041
     Dates: start: 20100809, end: 20100809
  19. TOCILIZUMAB [Suspect]
     Route: 041
     Dates: start: 20100907, end: 20100907
  20. TOCILIZUMAB [Suspect]
     Route: 041
     Dates: start: 20101005, end: 20101005
  21. TOCILIZUMAB [Suspect]
     Route: 041
     Dates: start: 20101102, end: 20101102
  22. TOCILIZUMAB [Suspect]
     Route: 041
     Dates: start: 20101130, end: 20101130
  23. TOCILIZUMAB [Suspect]
     Route: 041
     Dates: start: 20101228, end: 20101228
  24. TOCILIZUMAB [Suspect]
     Route: 041
     Dates: start: 20110125, end: 20110125
  25. TOCILIZUMAB [Suspect]
     Route: 041
     Dates: start: 20110222, end: 20110222
  26. TOCILIZUMAB [Suspect]
     Route: 041
     Dates: start: 20110322, end: 20110322
  27. TOCILIZUMAB [Suspect]
     Route: 041
     Dates: start: 20110419, end: 20110419
  28. PREDNISOLONE [Suspect]
     Indication: RHEUMATOID ARTHRITIS
     Dosage: FORM: ORAL FORMULATION (NOT OTHERWISE SPECIFIED).
     Route: 048
  29. PREDNISOLONE [Suspect]
     Dosage: FORM: ORAL FORMULATION (NOT OTHERWISE SPECIFIED).
     Route: 048
     Dates: start: 20110611, end: 20110626
  30. PROGRAF [Suspect]
     Indication: RHEUMATOID ARTHRITIS
     Route: 048
  31. PROGRAF [Suspect]
     Dosage: INFUSION RATE DECREASED
     Route: 048
  32. METALCAPTASE [Concomitant]
     Route: 048
  33. ITRIZOLE [Concomitant]
     Route: 048
  34. TAKEPRON [Concomitant]
     Route: 048
  35. WARFARIN [Concomitant]
     Dosage: INFUSION RATE DECREASED
     Route: 048
  36. WARFARIN [Concomitant]
     Route: 048
  37. WARFARIN [Concomitant]
     Route: 048
  38. BONALON [Concomitant]
     Dosage: DRUG: BONALON 35MG.
     Route: 048
  39. CELCOX [Concomitant]
     Dosage: DRUG: CELECOX.
     Route: 048
  40. FERROMIA [Concomitant]
     Dosage: FORM: ORAL FORMULATION (NOT OTHERWISE SPECIFIED).
     Route: 048
  41. TRYPTANOL [Concomitant]
     Route: 048

REACTIONS (6)
  - Meningioma [Recovered/Resolved]
  - Cellulitis [Recovered/Resolved]
  - Urinary tract infection [Recovered/Resolved]
  - Venous thrombosis limb [Recovering/Resolving]
  - Dislocation of vertebra [Unknown]
  - Joint dislocation [Unknown]
